FAERS Safety Report 6823898-6 (Version None)
Quarter: 2010Q3

REPORT INFORMATION
  Report Type: 
  Country: None (occurrence: None)
  Receive Date: 20100708
  Receipt Date: 20060915
  Transmission Date: 20110219
  Serious: No
  Sender: FDA-Public Use
  Company Number: US-PFIZER INC-2006114203

PATIENT
  Sex: Female
  Weight: 52.16 kg

DRUGS (8)
  1. CHANTIX [Suspect]
     Indication: SMOKING CESSATION THERAPY
     Dates: start: 20060913
  2. CODEINE [Suspect]
     Indication: BACK DISORDER
  3. MOBIC [Suspect]
     Indication: BACK DISORDER
     Dates: start: 20060830
  4. SYNTHROID [Concomitant]
  5. FORADIL [Concomitant]
  6. PULMICORT [Concomitant]
  7. FIORICET [Concomitant]
     Indication: SINUS HEADACHE
  8. MONTELUKAST [Concomitant]

REACTIONS (9)
  - BRONCHITIS [None]
  - CONSTIPATION [None]
  - DECREASED APPETITE [None]
  - EYELID OEDEMA [None]
  - FLUSHING [None]
  - INFLUENZA LIKE ILLNESS [None]
  - LETHARGY [None]
  - NASAL CONGESTION [None]
  - WHEEZING [None]
